FAERS Safety Report 9146803 (Version 2)
Quarter: 2013Q2

REPORT INFORMATION
  Report Type: Spontaneous
  Country: US (occurrence: US)
  Receive Date: 20130307
  Receipt Date: 20130409
  Transmission Date: 20140414
  Serious: Yes (Hospitalization)
  Sender: FDA-Public Use
  Company Number: US-BAYER-2013-028714

PATIENT
  Age: 78 Year
  Sex: Female

DRUGS (3)
  1. GADAVIST [Suspect]
     Indication: INVESTIGATION
     Dosage: 8 ML, ONCE
     Dates: start: 20130226, end: 20130226
  2. ATIVAN [Concomitant]
     Indication: CLAUSTROPHOBIA
     Dosage: UNK
     Dates: start: 20130226
  3. ATIVAN [Concomitant]
     Indication: PREMEDICATION

REACTIONS (2)
  - Unresponsive to stimuli [None]
  - Skin warm [None]
